FAERS Safety Report 10387907 (Version 2)
Quarter: 2014Q3

REPORT INFORMATION
  Report Type: Spontaneous
  Country: JP (occurrence: JP)
  Receive Date: 20140815
  Receipt Date: 20140907
  Transmission Date: 20150326
  Serious: Yes (Death)
  Sender: FDA-Public Use
  Company Number: PHHY2011JP121247

PATIENT
  Age: 67 Year
  Sex: Male

DRUGS (1)
  1. EXJADE [Suspect]
     Active Substance: DEFERASIROX
     Indication: IRON OVERLOAD
     Dosage: UNK UKN, UNK

REACTIONS (3)
  - Blood creatinine increased [Unknown]
  - Gastrointestinal disorder [Unknown]
  - Disease progression [Fatal]

NARRATIVE: CASE EVENT DATE: 201108
